FAERS Safety Report 14752295 (Version 4)
Quarter: 2019Q1

REPORT INFORMATION
  Report Type: Spontaneous
  Country: CA (occurrence: CA)
  Receive Date: 20180412
  Receipt Date: 20190328
  Transmission Date: 20190417
  Serious: Yes (Other)
  Sender: FDA-Public Use
  Company Number: CA-CELLTRION INC.-2017CA011395

PATIENT

DRUGS (12)
  1. INFLECTRA [Suspect]
     Active Substance: INFLIXIMAB-DYYB
     Dosage: 478 MG, CYCLIC (0, 2, 6 WEEKS, THEN EVERY 8 WEEKS)
     Route: 042
  2. INFLECTRA [Suspect]
     Active Substance: INFLIXIMAB-DYYB
     Dosage: 478 MG, CYCLIC (0, 2, 6 WEEKS, THEN EVERY 8 WEEKS)
     Route: 042
     Dates: start: 20180726
  3. INFLECTRA [Suspect]
     Active Substance: INFLIXIMAB-DYYB
     Dosage: 510 MG, THEN EVERY 8 WEEKS
     Route: 042
     Dates: start: 20180919
  4. MEZAVANT [Concomitant]
     Active Substance: MESALAMINE
     Dosage: 2.4 MG, BID
  5. PREDNISONE. [Concomitant]
     Active Substance: PREDNISONE
     Dosage: 40 MG  (PENDING CLARIFY)
  6. INFLECTRA [Suspect]
     Active Substance: INFLIXIMAB-DYYB
     Indication: COLITIS ULCERATIVE
     Dosage: 478 MG, CYCLIC (0, 2, 6 WEEKS, THEN EVERY 8 WEEKS)
     Route: 042
     Dates: start: 20170712
  7. INFLECTRA [Suspect]
     Active Substance: INFLIXIMAB-DYYB
     Dosage: 478 MG, CYCLIC (0, 2, 6 WEEKS, THEN EVERY 8 WEEKS)
     Route: 042
     Dates: start: 20180206
  8. ALVESCO [Concomitant]
     Active Substance: CICLESONIDE
     Dosage: UNK, PRN
  9. PREDNISONE. [Concomitant]
     Active Substance: PREDNISONE
     Dosage: 30 MG, TAPERING 5 MG PER WEEK
     Dates: start: 20170817, end: 2017
  10. INFLECTRA [Suspect]
     Active Substance: INFLIXIMAB-DYYB
     Dosage: 510 MG, THEN EVERY 8 WEEKS
     Route: 042
     Dates: start: 20181113
  11. SYMBICORT [Concomitant]
     Active Substance: BUDESONIDE\FORMOTEROL FUMARATE DIHYDRATE
     Dosage: UNK, PRN
  12. INFLECTRA [Suspect]
     Active Substance: INFLIXIMAB-DYYB
     Dosage: 510 MG, EVERY 8 WEEKS
     Route: 042
     Dates: start: 20190108

REACTIONS (3)
  - Musculoskeletal stiffness [Unknown]
  - Drug effect decreased [Recovered/Resolved]
  - Condition aggravated [Recovered/Resolved]

NARRATIVE: CASE EVENT DATE: 201708
